FAERS Safety Report 16844265 (Version 1)
Quarter: 2019Q3

REPORT INFORMATION
  Report Type: Spontaneous
  Country: DE (occurrence: DE)
  Receive Date: 20190924
  Receipt Date: 20190924
  Transmission Date: 20191005
  Serious: Yes (Other)
  Sender: FDA-Public Use
  Company Number: DE-EMD SERONO-9117333

PATIENT

DRUGS (4)
  1. MAVENCLAD [Suspect]
     Active Substance: CLADRIBINE
     Dosage: FOURTH CYCLE
  2. MAVENCLAD [Suspect]
     Active Substance: CLADRIBINE
     Dosage: SECOND CYCLE
  3. MAVENCLAD [Suspect]
     Active Substance: CLADRIBINE
     Dosage: THIRD CYCLE
  4. MAVENCLAD [Suspect]
     Active Substance: CLADRIBINE
     Indication: MULTIPLE SCLEROSIS
     Dosage: FIRST CYCLE

REACTIONS (2)
  - Urosepsis [Recovered/Resolved]
  - Lymphopenia [Unknown]
